FAERS Safety Report 21967851 (Version 1)
Quarter: 2023Q1

REPORT INFORMATION
  Report Type: Spontaneous
  Country: US (occurrence: US)
  Receive Date: 20230208
  Receipt Date: 20230208
  Transmission Date: 20230418
  Serious: Yes (Life-Threatening, Hospitalization)
  Sender: FDA-Public Use
  Company Number: US-MYLANLABS-2023M1014582

PATIENT
  Age: 67 Year
  Sex: Female

DRUGS (4)
  1. AMLODIPINE [Suspect]
     Active Substance: AMLODIPINE BESYLATE
     Indication: Product used for unknown indication
     Dosage: 5 MILLIGRAM, TOTAL OF 30 TABLETS
     Route: 048
  2. NOREPINEPHRINE [Suspect]
     Active Substance: NOREPINEPHRINE
     Indication: Distributive shock
     Dosage: UNK
     Route: 065
  3. CALCIUM [Suspect]
     Active Substance: CALCIUM
     Indication: Distributive shock
     Dosage: UNK
     Route: 042
  4. GLUCAGON [Suspect]
     Active Substance: GLUCAGON
     Indication: Distributive shock
     Dosage: UNK
     Route: 065

REACTIONS (8)
  - Distributive shock [Recovering/Resolving]
  - Intentional overdose [Recovered/Resolved]
  - Toxicity to various agents [Recovered/Resolved]
  - Completed suicide [Recovered/Resolved]
  - Drug ineffective [Unknown]
  - Blood pressure abnormal [Recovering/Resolving]
  - Mental disorder [Recovering/Resolving]
  - Coma scale abnormal [Recovering/Resolving]
